FAERS Safety Report 9991311 (Version 3)
Quarter: 2014Q3

REPORT INFORMATION
  Report Type: Spontaneous
  Country: US (occurrence: US)
  Receive Date: 20140310
  Receipt Date: 20140904
  Transmission Date: 20150326
  Serious: Yes (Other)
  Sender: FDA-Public Use
  Company Number: US-BAYER-2014-032488

PATIENT
  Age: 32 Year
  Sex: Female
  Weight: 68.93 kg

DRUGS (4)
  1. MIRENA [Suspect]
     Active Substance: LEVONORGESTREL
     Indication: CONTRACEPTION
     Dosage: 20 MCG/24HR, CONT
     Route: 015
     Dates: start: 20080729, end: 20120203
  2. CLINDAMYCIN [Concomitant]
     Active Substance: CLINDAMYCIN\CLINDAMYCIN PHOSPHATE
     Dosage: 300 MG, TID
  3. FLAGYL [Concomitant]
     Active Substance: METRONIDAZOLE\METRONIDAZOLE HYDROCHLORIDE
  4. VIBRAMYCIN [Concomitant]
     Active Substance: DOXYCYCLINE

REACTIONS (10)
  - Device issue [None]
  - Injury [None]
  - Menorrhagia [None]
  - Uterine perforation [None]
  - Pelvic inflammatory disease [None]
  - Abdominal pain lower [None]
  - Abdominal pain [None]
  - Discomfort [None]
  - Emotional distress [None]
  - Genital haemorrhage [None]

NARRATIVE: CASE EVENT DATE: 20120203
